FAERS Safety Report 4446042-1 (Version None)
Quarter: 2004Q3

REPORT INFORMATION
  Report Type: 
  Country: None (occurrence: None)
  Receive Date: 20040910
  Receipt Date: 20040901
  Transmission Date: 20050211
  Serious: Yes (Life-Threatening)
  Sender: FDA-Public Use
  Company Number: FR-GLAXOSMITHKLINE-B0344068A

PATIENT
  Age: 69 Year
  Sex: Male

DRUGS (5)
  1. REQUIP [Suspect]
     Indication: PARKINSON'S DISEASE
     Dosage: 2.5MG THREE TIMES PER DAY
     Route: 048
  2. REMINYL [Suspect]
     Dosage: 1UNIT TWICE PER DAY
     Route: 048
     Dates: start: 20040706, end: 20040719
  3. COMTAN [Suspect]
     Indication: PARKINSON'S DISEASE
     Dosage: 1TAB FOUR TIMES PER DAY
     Route: 048
  4. SINEMET [Suspect]
     Indication: PARKINSON'S DISEASE
     Dosage: 2TAB FOUR TIMES PER DAY
     Route: 048
  5. STABLON [Concomitant]
     Dosage: 12.5MG THREE TIMES PER DAY
     Route: 048
     Dates: start: 20040710, end: 20040717

REACTIONS (5)
  - COGNITIVE DISORDER [None]
  - CONVULSION [None]
  - DEHYDRATION [None]
  - HYPOGLYCAEMIA [None]
  - SOMNOLENCE [None]
